FAERS Safety Report 20987243 (Version 1)
Quarter: 2022Q2

REPORT INFORMATION
  Report Type: Spontaneous
  Country: US (occurrence: None)
  Receive Date: 20220617
  Receipt Date: 20220617
  Transmission Date: 20220721
  Serious: Yes (unspecified)
  Sender: FDA-Public Use
  Company Number: None

PATIENT
  Age: 46 Year
  Sex: Female

DRUGS (1)
  1. REMDESIVIR [Suspect]
     Active Substance: REMDESIVIR
     Indication: COVID-19
     Dosage: FREQUENCY : 3 TIMES A DAY?
     Route: 042
     Dates: start: 20220615, end: 20220617

REACTIONS (1)
  - Pruritus [None]

NARRATIVE: CASE EVENT DATE: 20220617
